FAERS Safety Report 9785922 (Version 2)
Quarter: 2014Q1

REPORT INFORMATION
  Report Type: Spontaneous
  Country: PT (occurrence: PT)
  Receive Date: 20131227
  Receipt Date: 20140116
  Transmission Date: 20141002
  Serious: Yes (Other)
  Sender: FDA-Public Use
  Company Number: PT-JNJFOC-20131214157

PATIENT
  Age: 37 Year
  Sex: Male

DRUGS (8)
  1. PREZISTA [Suspect]
     Indication: HIV INFECTION
     Route: 048
     Dates: start: 20131111, end: 20131118
  2. TEVAGRASTIM [Suspect]
     Indication: NEUTROPENIA
     Dosage: DAILY DOSE OF 30000000 UNITS PER DAY
     Route: 058
     Dates: start: 20131209, end: 20131210
  3. TEVAGRASTIM [Suspect]
     Indication: NEUTROPENIA
     Dosage: DOSE FROM 12-NOV-2013 TO 15-NOV-2013, 20-NOV-2013 TO 02-DEC-2013 WAS 30000000 UNITS PER DAY
     Route: 058
     Dates: start: 20131112, end: 20131202
  4. SULFAMETHOXAZOLE/TRIMETHOPRIM [Suspect]
     Indication: ANTIFUNGAL PROPHYLAXIS
     Dosage: 800 MG OF SULFAMETHOXAZOLE AND 160 MG OF TRIMETHOPRIM
     Route: 048
     Dates: start: 20131107, end: 20131118
  5. TENOFOVIR DISPROXIL FUMARATE [Concomitant]
     Indication: HIV INFECTION
     Dosage: 1 DU UNIT DOSE
     Route: 048
     Dates: start: 20131111, end: 20131127
  6. EMTRICITABINE [Concomitant]
     Indication: HIV INFECTION
     Dosage: 1 DU UNIT DOSE
     Route: 065
     Dates: start: 20131111, end: 20131127
  7. FLUCLOXACILLIN SODIUM [Concomitant]
     Indication: INFECTED SKIN ULCER
     Dosage: 1 DU UNIT DOSE
     Route: 048
     Dates: start: 20131111, end: 20131127
  8. RITONAVIR [Concomitant]
     Indication: HIV INFECTION
     Route: 048
     Dates: start: 20131111, end: 20131126

REACTIONS (4)
  - Erythema [Recovered/Resolved]
  - Pruritus [Recovered/Resolved]
  - Rash maculo-papular [Recovered/Resolved]
  - Cytomegalovirus infection [Recovered/Resolved]
